FAERS Safety Report 7199512-X (Version None)
Quarter: 2010Q4

REPORT INFORMATION
  Report Type: 
  Country: None (occurrence: None)
  Receive Date: 20101214
  Receipt Date: 20101202
  Transmission Date: 20110411
  Serious: Yes (Hospitalization, Other)
  Sender: FDA-Public Use
  Company Number: 2010120009

PATIENT
  Age: 62 Year
  Sex: Male

DRUGS (3)
  1. ZOLPIDEM [Suspect]
     Indication: SLEEP DISORDER
     Dosage: 10 MG, AT BEDTIME, ORAL, 160-180MG (DAILY)
     Route: 048
  2. ESCITALOPRAM [Concomitant]
  3. DOMPERIDONE WITH ACETAMINOPHEN (DOMPERIDONE, ACETAMINPHEN) [Concomitant]

REACTIONS (5)
  - DELIRIUM [None]
  - DRUG DEPENDENCE [None]
  - DRUG WITHDRAWAL SYNDROME [None]
  - INAPPROPRIATE SCHEDULE OF DRUG ADMINISTRATION [None]
  - INCORRECT DOSE ADMINISTERED [None]
